FAERS Safety Report 15546954 (Version 18)
Quarter: 2021Q2

REPORT INFORMATION
  Report Type: Report from Study
  Country: NL (occurrence: NL)
  Receive Date: 20181024
  Receipt Date: 20210513
  Transmission Date: 20210716
  Serious: Yes (Hospitalization)
  Sender: FDA-Public Use
  Company Number: NL-SA-2018SA141172

PATIENT
  Age: 47 Year
  Sex: Female
  Weight: 73 kg

DRUGS (2)
  1. ALEMTUZUMAB [Suspect]
     Active Substance: ALEMTUZUMAB
     Dosage: 12 MG, QD
     Route: 041
     Dates: start: 20160926, end: 20160930
  2. ALEMTUZUMAB [Suspect]
     Active Substance: ALEMTUZUMAB
     Indication: RELAPSING MULTIPLE SCLEROSIS
     Dosage: 12 MG, QD
     Route: 041
     Dates: start: 20171009, end: 20171011

REACTIONS (20)
  - Influenza [Recovered/Resolved]
  - Groin infection [Recovered/Resolved]
  - Haemarthrosis [Recovered/Resolved]
  - Depression [Not Recovered/Not Resolved]
  - Immune thrombocytopenia [Recovered/Resolved]
  - Musculoskeletal pain [Recovered/Resolved]
  - Haematoma [Recovered/Resolved]
  - Nail bed inflammation [Recovered/Resolved]
  - Diarrhoea [Recovered/Resolved]
  - Urinary tract infection [Recovered/Resolved]
  - Infusion site swelling [Recovered/Resolved]
  - Cognitive disorder [Not Recovered/Not Resolved]
  - Malaise [Recovered/Resolved]
  - Eye pain [Not Recovered/Not Resolved]
  - Bursitis [Not Recovered/Not Resolved]
  - Nausea [Recovered/Resolved]
  - Renal vein thrombosis [Recovered/Resolved]
  - Femur fracture [Recovered/Resolved]
  - Heavy menstrual bleeding [Recovered/Resolved]
  - Vomiting [Recovered/Resolved]

NARRATIVE: CASE EVENT DATE: 20171009
